FAERS Safety Report 4753644-1 (Version None)
Quarter: 2005Q3

REPORT INFORMATION
  Report Type: 
  Country: None (occurrence: None)
  Receive Date: 20050824
  Receipt Date: 20050808
  Transmission Date: 20060218
  Serious: Yes (Hospitalization)
  Sender: FDA-Public Use
  Company Number: 2005-BP-13499RO

PATIENT
  Age: 76 Year
  Sex: Female

DRUGS (8)
  1. DIGOXIN [Suspect]
     Indication: CARDIAC FAILURE CONGESTIVE
     Dosage: 0.25 MG/DAY (0.25 MG), PO
     Route: 048
  2. FUSIDIC ACID [Concomitant]
  3. MONSODIUM ALENDRONATE (ALENDRONATE SODIUM) [Concomitant]
  4. AMIODARONE HCL [Concomitant]
  5. CAPTOPRIL [Concomitant]
  6. POTASSIUM CHLORIDE [Concomitant]
  7. CARBOCYSTEINE (CARBOCISTEINE) [Concomitant]
  8. FLUINDIONE (FLUINDIONE) [Concomitant]

REACTIONS (7)
  - CARDIAC ENZYMES INCREASED [None]
  - CONTUSION [None]
  - FALL [None]
  - HEPATIC ENZYME INCREASED [None]
  - LABORATORY TEST INTERFERENCE [None]
  - THERAPEUTIC AGENT TOXICITY [None]
  - VOMITING [None]
